FAERS Safety Report 7860990-1 (Version None)
Quarter: 2011Q4

REPORT INFORMATION
  Report Type: 
  Country: None (occurrence: None)
  Receive Date: 20111027
  Receipt Date: 20111020
  Transmission Date: 20120403
  Serious: Yes (Other)
  Sender: FDA-Public Use
  Company Number: US-GLAXOSMITHKLINE-A0949887A

PATIENT
  Age: 73 Year
  Sex: Male

DRUGS (3)
  1. ADVAIR DISKUS 100/50 [Suspect]
     Indication: CHRONIC OBSTRUCTIVE PULMONARY DISEASE
     Dosage: 1PUFF TWICE PER DAY
     Route: 055
     Dates: start: 20111010, end: 20111019
  2. SPIRIVA [Concomitant]
  3. PREDNISONE [Concomitant]

REACTIONS (4)
  - VISUAL ACUITY REDUCED [None]
  - THROAT IRRITATION [None]
  - OROPHARYNGEAL PAIN [None]
  - INTRAOCULAR PRESSURE INCREASED [None]
